FAERS Safety Report 4760975-8 (Version None)
Quarter: 2005Q3

REPORT INFORMATION
  Report Type: 
  Country: None (occurrence: None)
  Receive Date: 20050901
  Receipt Date: 20050818
  Transmission Date: 20060218
  Serious: Yes (Hospitalization)
  Sender: FDA-Public Use
  Company Number: 2005-01795

PATIENT
  Age: 41 Year
  Sex: Female

DRUGS (2)
  1. VELCADE [Suspect]
     Indication: MULTIPLE MYELOMA
     Dosage: 1.30 MG/M2, IV BOLUS
     Route: 040
     Dates: start: 20040101
  2. DEXAMETHASONE [Concomitant]

REACTIONS (17)
  - ASTHENIA [None]
  - BACK PAIN [None]
  - BONE PAIN [None]
  - DIARRHOEA [None]
  - DISEASE PROGRESSION [None]
  - DISEASE RECURRENCE [None]
  - ENTERITIS [None]
  - EYE DISORDER [None]
  - HYPOAESTHESIA [None]
  - INFECTION [None]
  - MASS [None]
  - NERVE ROOT COMPRESSION [None]
  - PATHOLOGICAL FRACTURE [None]
  - RADIATION INJURY [None]
  - SKIN LESION [None]
  - SPINAL DISORDER [None]
  - STEM CELL TRANSPLANT [None]
